FAERS Safety Report 15788983 (Version 1)
Quarter: 2019Q1

REPORT INFORMATION
  Report Type: Report from Study
  Country: JP (occurrence: JP)
  Receive Date: 20190104
  Receipt Date: 20190104
  Transmission Date: 20190417
  Serious: Yes (Other)
  Sender: FDA-Public Use
  Company Number: JP-BEH-2018098064

PATIENT
  Age: 40 Year
  Sex: Male
  Weight: 47.4 kg

DRUGS (11)
  1. PREZISTANAIVE [Concomitant]
     Active Substance: DARUNAVIR
     Route: 048
  2. ALLOPURINOL. [Concomitant]
     Active Substance: ALLOPURINOL
     Route: 048
  3. IDELVION [Suspect]
     Active Substance: COAGULATION FACTOR IX RECOMBINANT HUMAN
     Indication: PROPHYLAXIS
     Dosage: 2000 IU, SINGLE
     Route: 042
     Dates: start: 20170616, end: 20170616
  4. NORVIR [Concomitant]
     Active Substance: RITONAVIR
     Route: 048
  5. IDELVION [Suspect]
     Active Substance: COAGULATION FACTOR IX RECOMBINANT HUMAN
     Dosage: 2000 IU, QW
     Route: 042
     Dates: start: 20170630, end: 20170721
  6. IDELVION [Suspect]
     Active Substance: COAGULATION FACTOR IX RECOMBINANT HUMAN
     Dosage: 2000 IU, QW
     Route: 042
     Dates: start: 20170804, end: 20171027
  7. IDELVION [Suspect]
     Active Substance: COAGULATION FACTOR IX RECOMBINANT HUMAN
     Dosage: 2000 IU, QW
     Route: 042
     Dates: start: 20171117, end: 20171201
  8. EPIVIR [Concomitant]
     Active Substance: LAMIVUDINE
     Route: 048
  9. CANDESARTAN                        /01349502/ [Concomitant]
     Active Substance: CANDESARTAN
     Route: 048
  10. IDELVION [Suspect]
     Active Substance: COAGULATION FACTOR IX RECOMBINANT HUMAN
     Indication: FACTOR IX DEFICIENCY
     Dosage: 2000 IU, SINGLE
     Route: 042
     Dates: start: 20170607, end: 20170607
  11. ISENTRESS [Concomitant]
     Active Substance: RALTEGRAVIR POTASSIUM
     Dosage: 400 MG, UNK
     Route: 048

REACTIONS (3)
  - Gastroenteritis [Recovered/Resolved]
  - Haemarthrosis [Unknown]
  - Haemarthrosis [Unknown]

NARRATIVE: CASE EVENT DATE: 20170827
